FAERS Safety Report 14365293 (Version 1)
Quarter: 2018Q1

REPORT INFORMATION
  Report Type: Spontaneous
  Country: SE (occurrence: SE)
  Receive Date: 20180108
  Receipt Date: 20180108
  Transmission Date: 20180509
  Serious: Yes (Other)
  Sender: FDA-Public Use
  Company Number: SE-MYLANLABS-2017M1083560

PATIENT
  Age: 77 Year
  Sex: Male

DRUGS (1)
  1. METOMYLAN 100 MG DEPOTTABLETTER [Suspect]
     Active Substance: METOPROLOL SUCCINATE
     Indication: CARDIAC FAILURE

REACTIONS (2)
  - Blood pressure increased [Unknown]
  - Drug ineffective [Unknown]
